FAERS Safety Report 9160141 (Version 1)
Quarter: 2013Q1

REPORT INFORMATION
  Report Type: Spontaneous
  Country: ZA (occurrence: ZA)
  Receive Date: 20130313
  Receipt Date: 20130313
  Transmission Date: 20140127
  Serious: Yes (Hospitalization)
  Sender: FDA-Public Use
  Company Number: ZA-BAYER-2013-030789

PATIENT
  Age: 63 Year
  Sex: Female

DRUGS (1)
  1. AVELON [Suspect]
     Indication: UPPER RESPIRATORY TRACT INFECTION
     Dosage: DAILY DOSE 400 MG
     Route: 048

REACTIONS (2)
  - Bone marrow failure [None]
  - Gastrointestinal haemorrhage [None]
